FAERS Safety Report 5941296-4 (Version None)
Quarter: 2008Q4

REPORT INFORMATION
  Report Type: 
  Country: None (occurrence: None)
  Receive Date: 20081103
  Receipt Date: 20081103
  Transmission Date: 20090506
  Serious: Yes (Hospitalization)
  Sender: FDA-Public Use
  Company Number: None

PATIENT
  Age: 60 Year
  Sex: Male
  Weight: 78.9259 kg

DRUGS (2)
  1. CYTOXAN [Suspect]
     Indication: NON-HODGKIN'S LYMPHOMA
     Dosage: 3 WEEKS APART IV DRIP
     Route: 041
     Dates: start: 20080708, end: 20080909
  2. VEPESID [Suspect]
     Indication: NON-HODGKIN'S LYMPHOMA
     Dosage: 3 WEEKS APART IV DRIP
     Route: 041

REACTIONS (11)
  - BONE PAIN [None]
  - COUGH [None]
  - DRUG INEFFECTIVE [None]
  - DYSPNOEA [None]
  - EATING DISORDER [None]
  - HAEMATOCRIT DECREASED [None]
  - INFLUENZA [None]
  - NAUSEA [None]
  - NIGHT SWEATS [None]
  - OEDEMA [None]
  - PRURITUS [None]
